FAERS Safety Report 22951677 (Version 2)
Quarter: 2023Q4

REPORT INFORMATION
  Report Type: Spontaneous
  Country: US (occurrence: None)
  Receive Date: 20230918
  Receipt Date: 20231017
  Transmission Date: 20240110
  Serious: No
  Sender: FDA-Public Use
  Company Number: 2023A209378

PATIENT
  Sex: Female

DRUGS (1)
  1. BRILINTA [Suspect]
     Active Substance: TICAGRELOR
     Route: 048
     Dates: start: 20230906

REACTIONS (6)
  - Malaise [Unknown]
  - Decreased appetite [Unknown]
  - Illness [Unknown]
  - Visual impairment [Unknown]
  - Product packaging quantity issue [Unknown]
  - Physical product label issue [Unknown]
